FAERS Safety Report 13122028 (Version 1)
Quarter: 2017Q1

REPORT INFORMATION
  Report Type: Spontaneous
  Country: US (occurrence: US)
  Receive Date: 20170116
  Receipt Date: 20170116
  Transmission Date: 20170428
  Serious: Yes (Life-Threatening)
  Sender: FDA-Public Use
  Company Number: None

PATIENT
  Age: 14 Year
  Sex: Female
  Weight: 35.55 kg

DRUGS (17)
  1. PREVACID [Concomitant]
     Active Substance: LANSOPRAZOLE
  2. ONFI [Concomitant]
     Active Substance: CLOBAZAM
  3. CLONODINE [Concomitant]
  4. SILDINAFIL [Concomitant]
     Active Substance: SILDENAFIL
  5. CATAPRES-TTS [Suspect]
     Active Substance: CLONIDINE
     Indication: HYPERTENSION
     Dosage: ?          QUANTITY:4 PATCH(ES);OTHER FREQUENCY:2X A WEEK;?
     Route: 062
     Dates: start: 20161214, end: 20170116
  6. TYLENOL [Concomitant]
     Active Substance: ACETAMINOPHEN
  7. GABAPENTON [Concomitant]
  8. JENEL FE [Concomitant]
  9. LEVOFLOXCIN [Concomitant]
     Active Substance: LEVOFLOXACIN
  10. PROBIOTIC [Concomitant]
     Active Substance: PROBIOTICS NOS
  11. MIRALAX [Concomitant]
     Active Substance: POLYETHYLENE GLYCOL 3350
  12. TEGRITOL [Concomitant]
  13. LEVOTHYROXIN [Concomitant]
     Active Substance: LEVOTHYROXINE
  14. DEXCOM G4 [Concomitant]
     Active Substance: DEVICE
  15. PROGLYCEN [Concomitant]
  16. DIESTAT [Concomitant]
  17. SOLARIS OXYGEN [Concomitant]

REACTIONS (6)
  - Seizure [None]
  - Blood pressure increased [None]
  - Agitation [None]
  - Product substitution issue [None]
  - Heart rate increased [None]
  - Incorrect dose administered by device [None]

NARRATIVE: CASE EVENT DATE: 20170116
